FAERS Safety Report 15110240 (Version 1)
Quarter: 2018Q3

REPORT INFORMATION
  Report Type: Spontaneous
  Country: IT (occurrence: IT)
  Receive Date: 20180705
  Receipt Date: 20180705
  Transmission Date: 20181010
  Serious: Yes (Other)
  Sender: FDA-Public Use
  Company Number: IT-PFIZER INC-2018269430

PATIENT
  Age: 33 Year
  Sex: Female

DRUGS (2)
  1. XANAX [Suspect]
     Active Substance: ALPRAZOLAM
     Indication: ANXIETY
     Dosage: 1 DF, AS NEEDED
     Route: 048
     Dates: start: 20180101, end: 20180409
  2. RINAZINA [Suspect]
     Active Substance: NAPHAZOLINE NITRATE
     Dosage: 1 DF, AS NEEDED

REACTIONS (4)
  - Constipation [Recovering/Resolving]
  - Drug abuse [Recovering/Resolving]
  - Abdominal pain upper [Recovering/Resolving]
  - Vomiting [Recovering/Resolving]

NARRATIVE: CASE EVENT DATE: 20180409
